FAERS Safety Report 18455276 (Version 9)
Quarter: 2021Q2

REPORT INFORMATION
  Report Type: Spontaneous
  Country: JP (occurrence: JP)
  Receive Date: 20201102
  Receipt Date: 20210625
  Transmission Date: 20210717
  Serious: Yes (Hospitalization, Other)
  Sender: FDA-Public Use
  Company Number: JP-009507513-2010JPN002008J

PATIENT
  Sex: Male

DRUGS (7)
  1. BELSOMRA [Suspect]
     Active Substance: SUVOREXANT
     Dosage: 20 MILLIGRAM, PRN
     Route: 048
     Dates: end: 2021
  2. TRAZODONE [Suspect]
     Active Substance: TRAZODONE HYDROCHLORIDE
     Indication: INSOMNIA
     Dosage: 25 MILLIGRAM, PRN
     Route: 048
     Dates: start: 2019, end: 2019
  3. BELSOMRA [Suspect]
     Active Substance: SUVOREXANT
     Dosage: 20 MILLIGRAM, OTHER THAN JUST BEFORE BEDTIME
     Route: 048
  4. BELSOMRA [Suspect]
     Active Substance: SUVOREXANT
     Dosage: 20 MILLIGRAM, PRN
     Route: 048
  5. TRAZODONE [Suspect]
     Active Substance: TRAZODONE HYDROCHLORIDE
     Dosage: 25 MILLIGRAM, PRN
     Route: 048
  6. BELSOMRA [Suspect]
     Active Substance: SUVOREXANT
     Indication: INSOMNIA
     Dosage: 20 MILLIGRAM, HS
     Route: 048
  7. TRAZODONE [Suspect]
     Active Substance: TRAZODONE HYDROCHLORIDE
     Dosage: 25 MILLIGRAM, QD
     Route: 048
     Dates: start: 2019

REACTIONS (15)
  - Terminal insomnia [Unknown]
  - Adverse event [Unknown]
  - Insomnia [Unknown]
  - Drug ineffective [Unknown]
  - Therapeutic response delayed [Unknown]
  - Product use issue [Unknown]
  - Feeling abnormal [Unknown]
  - Amnesia [Unknown]
  - Somnolence [Unknown]
  - Product use in unapproved indication [Unknown]
  - Spontaneous penile erection [Unknown]
  - Depressed level of consciousness [Unknown]
  - Dizziness [Unknown]
  - Middle insomnia [Unknown]
  - Euphoric mood [Unknown]

NARRATIVE: CASE EVENT DATE: 2019
